FAERS Safety Report 7031468-2 (Version None)
Quarter: 2010Q4

REPORT INFORMATION
  Report Type: 
  Country: None (occurrence: None)
  Receive Date: 20101006
  Receipt Date: 20100924
  Transmission Date: 20110411
  Serious: Yes (Other)
  Sender: FDA-Public Use
  Company Number: BR-PFIZER INC-2010122098

PATIENT
  Age: 40 Year
  Sex: Male
  Weight: 80 kg

DRUGS (1)
  1. DOSTINEX [Suspect]
     Indication: PITUITARY TUMOUR BENIGN
     Dosage: 0.5 MG, 2X/WEEK (ON TUES + FRI)
     Route: 048
     Dates: start: 20070901

REACTIONS (7)
  - CHEST PAIN [None]
  - DECREASED APPETITE [None]
  - DRUG EFFECT DECREASED [None]
  - HIATUS HERNIA [None]
  - NIPPLE PAIN [None]
  - POLYURIA [None]
  - WEIGHT DECREASED [None]
